FAERS Safety Report 8634494 (Version 4)
Quarter: 2014Q2

REPORT INFORMATION
  Report Type: Spontaneous
  Country: FR (occurrence: FR)
  Receive Date: 20120605
  Receipt Date: 20140609
  Transmission Date: 20141212
  Serious: Yes (Hospitalization)
  Sender: FDA-Public Use
  Company Number: FR-009507513-2012SP028911

PATIENT
  Age: 45 Year
  Sex: Male

DRUGS (6)
  1. VICTRELIS [Suspect]
     Indication: HEPATITIS C
     Dosage: 800 MG, TID
     Dates: start: 20110614
  2. VIRAFERONPEG [Suspect]
     Indication: HEPATITIS C
     Dosage: 80 ?G, QW
     Dates: start: 20110517
  3. COPEGUS [Suspect]
     Indication: HEPATITIS C
     Dosage: 800 MG, QD
     Dates: start: 20110517
  4. NEUPOGEN [Concomitant]
     Indication: NEUTROPENIA
     Dates: start: 20120117
  5. NEORECORMON [Concomitant]
     Indication: ANAEMIA
     Dosage: 30000 IU, QW
  6. ZOVIRAX [Concomitant]
     Indication: ORAL DISORDER
     Dosage: 800 MG, BID
     Dates: start: 20120124

REACTIONS (2)
  - Cholecystitis acute [Recovered/Resolved]
  - Abdominal pain lower [Recovered/Resolved]
